FAERS Safety Report 6662412-5 (Version None)
Quarter: 2010Q1

REPORT INFORMATION
  Report Type: 
  Country: None (occurrence: None)
  Receive Date: 20100329
  Receipt Date: 20100316
  Transmission Date: 20100710
  Serious: Yes (Death)
  Sender: FDA-Public Use
  Company Number: A-NJ2009-32859

PATIENT
  Age: 46 Year
  Sex: Male

DRUGS (4)
  1. VENTAVIS [Suspect]
     Indication: PULMONARY ARTERIAL HYPERTENSION
     Dosage: 5 UG, Q2H 6XDAILY, RESPIRATORY
     Route: 055
     Dates: start: 20071026, end: 20091220
  2. REVATIO [Concomitant]
  3. CYTOXAN [Concomitant]
  4. PREDNISONE TAB [Concomitant]

REACTIONS (2)
  - PULMONARY HYPERTENSION [None]
  - RIGHT VENTRICULAR FAILURE [None]
